FAERS Safety Report 19682166 (Version 2)
Quarter: 2021Q3

REPORT INFORMATION
  Report Type: Report from Study
  Country: US (occurrence: US)
  Receive Date: 20210810
  Receipt Date: 20210831
  Transmission Date: 20211014
  Serious: Yes (Death)
  Sender: FDA-Public Use
  Company Number: US-JNJFOC-20210807081

PATIENT
  Age: 40 Year
  Sex: Female
  Weight: 70.9 kg

DRUGS (6)
  1. SELEXIPAG [Suspect]
     Active Substance: SELEXIPAG
     Dosage: DECREASE UPTRAVI FROM 1000MCG TWICE A DAY TO 800MCG IN AM AND 1000MG IN PM
     Route: 048
  2. OPSUMIT [Suspect]
     Active Substance: MACITENTAN
     Indication: PRODUCT USED FOR UNKNOWN INDICATION
     Route: 065
  3. SILDENAFIL CITRATE. [Concomitant]
     Active Substance: SILDENAFIL CITRATE
  4. SELEXIPAG [Suspect]
     Active Substance: SELEXIPAG
     Route: 048
  5. SELEXIPAG [Suspect]
     Active Substance: SELEXIPAG
     Indication: PULMONARY HYPERTENSION
     Dosage: DECREASE UPTRAVI FROM 1000MCG TWICE A DAY TO 800MCG IN AM AND 1000MG IN PM
     Route: 048
  6. ELIQUIS [Concomitant]
     Active Substance: APIXABAN

REACTIONS (2)
  - Death [Fatal]
  - Tachycardia [Recovering/Resolving]
